FAERS Safety Report 8318260-3 (Version None)
Quarter: 2012Q2

REPORT INFORMATION
  Report Type: 
  Country: None (occurrence: None)
  Receive Date: 20120427
  Receipt Date: 20120420
  Transmission Date: 20120825
  Serious: No
  Sender: FDA-Public Use
  Company Number: US-PFIZER INC-2011178937

PATIENT
  Sex: Female
  Weight: 54.422 kg

DRUGS (4)
  1. BUPROPION HYDROCHLORIDE [Concomitant]
     Dosage: 200 MG, 2X/DAY
  2. SULFASALAZINE [Suspect]
     Indication: COLITIS
     Dosage: UNK
     Route: 048
     Dates: start: 20110601
  3. SULFASALAZINE [Suspect]
     Indication: COLITIS ULCERATIVE
  4. AZULFIDINE [Suspect]
     Indication: COLITIS
     Dosage: 500 MG, 3X/DAY
     Route: 048
     Dates: start: 20110101

REACTIONS (9)
  - NOCTURIA [None]
  - ANOSMIA [None]
  - PARAESTHESIA [None]
  - FATIGUE [None]
  - WEIGHT DECREASED [None]
  - HAEMOGLOBIN DECREASED [None]
  - MUSCULOSKELETAL DISCOMFORT [None]
  - MUSCULOSKELETAL STIFFNESS [None]
  - APPETITE DISORDER [None]
